FAERS Safety Report 9878494 (Version 1)
Quarter: 2014Q1

REPORT INFORMATION
  Report Type: Other
  Country: US (occurrence: US)
  Receive Date: 20140206
  Receipt Date: 20140206
  Transmission Date: 20141002
  Serious: No
  Sender: FDA-Public Use
  Company Number: US-ACORDA-ACO_35855_2013

PATIENT
  Sex: Female

DRUGS (3)
  1. AMPYRA [Suspect]
     Indication: PRODUCT USED FOR UNKNOWN INDICATION
     Dosage: 10 MG, BID
     Route: 065
     Dates: end: 201210
  2. 4-AP [Suspect]
     Indication: PRODUCT USED FOR UNKNOWN INDICATION
     Dosage: UNK
  3. UNKNOWN PESTICIDE [Suspect]
     Indication: ENVIRONMENTAL EXPOSURE
     Dosage: UNK,UNK
     Route: 065
     Dates: start: 201302

REACTIONS (3)
  - Fatigue [Recovered/Resolved]
  - Vaginal haemorrhage [Recovered/Resolved]
  - Asthenia [Recovered/Resolved]
